FAERS Safety Report 17990583 (Version 2)
Quarter: 2020Q3

REPORT INFORMATION
  Report Type: Spontaneous
  Country: US (occurrence: US)
  Receive Date: 20200707
  Receipt Date: 20200716
  Transmission Date: 20201103
  Serious: Yes (Other)
  Sender: FDA-Public Use
  Company Number: US-GLAXOSMITHKLINE-US2019AMR240521

PATIENT
  Sex: Female

DRUGS (2)
  1. ZEJULA [Suspect]
     Active Substance: NIRAPARIB
     Indication: OVARIAN CANCER
     Dosage: 100 MG, TID (300 MG DAILY)
     Route: 048
     Dates: start: 20170105, end: 20190615
  2. ZEJULA [Suspect]
     Active Substance: NIRAPARIB
     Dosage: 100 MG, TID(300 MG DAILY)
     Route: 048
     Dates: start: 20170501

REACTIONS (7)
  - Condition aggravated [Unknown]
  - Photosensitivity reaction [Unknown]
  - Dyspepsia [Unknown]
  - Malignant neoplasm progression [Not Recovered/Not Resolved]
  - Neuropathy peripheral [Unknown]
  - Positron emission tomogram abnormal [Unknown]
  - Product dose omission issue [Unknown]
